FAERS Safety Report 4511037-6 (Version None)
Quarter: 2004Q4

REPORT INFORMATION
  Report Type: 
  Country: None (occurrence: None)
  Receive Date: 20041018
  Receipt Date: 20040921
  Transmission Date: 20050328
  Serious: No
  Sender: FDA-Public Use
  Company Number: 209188

PATIENT
  Age: 52 Year
  Sex: Male

DRUGS (2)
  1. XOLAIR [Suspect]
     Indication: ASTHMA
     Dosage: SUBCUTANEOUS
     Route: 058
     Dates: start: 20040915
  2. UNSPECIFIED CONCOMITANT DRUGS (GENERIC COMPONENTS) [Concomitant]

REACTIONS (1)
  - NASAL CONGESTION [None]
